FAERS Safety Report 24683670 (Version 3)
Quarter: 2024Q4

REPORT INFORMATION
  Report Type: Report from Study
  Country: CA (occurrence: CA)
  Receive Date: 20241202
  Receipt Date: 20241219
  Transmission Date: 20250115
  Serious: Yes (Other)
  Sender: JOHNSON AND JOHNSON
  Company Number: CA-JNJFOC-20241171910

PATIENT
  Age: 15 Year
  Sex: Male
  Weight: 56 kg

DRUGS (3)
  1. REMICADE [Suspect]
     Active Substance: INFLIXIMAB
     Indication: Crohn^s disease
     Route: 041
     Dates: start: 20191118
  2. REMICADE [Suspect]
     Active Substance: INFLIXIMAB
     Dosage: WEEKS 0-2-6 THEN EVERY 4 WEEKS
     Route: 041
  3. REMICADE [Suspect]
     Active Substance: INFLIXIMAB
     Route: 041

REACTIONS (5)
  - Crohn^s disease [Unknown]
  - Drug level decreased [Recovering/Resolving]
  - Off label use [Unknown]
  - Oral herpes [Recovering/Resolving]
  - Fatigue [Not Recovered/Not Resolved]

NARRATIVE: CASE EVENT DATE: 20241121
